FAERS Safety Report 8088846-2 (Version None)
Quarter: 2012Q1

REPORT INFORMATION
  Report Type: 
  Country: None (occurrence: None)
  Receive Date: 20120128
  Receipt Date: 20110413
  Transmission Date: 20120608
  Serious: No
  Sender: FDA-Public Use
  Company Number: US-ABBOTT-11P-163-0718742-00

PATIENT
  Age: 18 Year
  Sex: Female

DRUGS (4)
  1. HUMIRA [Suspect]
     Dosage: LOADING DOSE DAY 15
  2. HUMIRA [Suspect]
     Indication: CROHN'S DISEASE
     Dosage: LOADING DOSE DAY 1
     Dates: start: 20110310, end: 20110310
  3. METHOTREXATE [Concomitant]
     Indication: CROHN'S DISEASE
  4. HUMIRA [Suspect]

REACTIONS (3)
  - INJECTION SITE PAPULE [None]
  - INJECTION SITE ERYTHEMA [None]
  - INJECTION SITE URTICARIA [None]
